FAERS Safety Report 7802484-5 (Version None)
Quarter: 2011Q4

REPORT INFORMATION
  Report Type: 
  Country: None (occurrence: None)
  Receive Date: 20111007
  Receipt Date: 20110929
  Transmission Date: 20120403
  Serious: Yes (Hospitalization)
  Sender: FDA-Public Use
  Company Number: JP-GLAXOSMITHKLINE-B0743620A

PATIENT
  Sex: Male

DRUGS (5)
  1. THIOPENTAL SODIUM [Concomitant]
     Route: 042
  2. UNKNOWN DRUG [Concomitant]
     Route: 042
  3. CEFOZOPRAN HYDROCHLORIDE [Concomitant]
     Route: 042
  4. ZOVIRAX [Suspect]
     Indication: ENCEPHALITIS HERPES
     Dosage: 1500MG PER DAY
     Route: 048
     Dates: end: 20110829
  5. DEPAKENE [Concomitant]
     Route: 048

REACTIONS (2)
  - COMA [None]
  - RENAL FAILURE ACUTE [None]
